FAERS Safety Report 20939254 (Version 2)
Quarter: 2022Q3

REPORT INFORMATION
  Report Type: Spontaneous
  Country: US (occurrence: US)
  Receive Date: 20220609
  Receipt Date: 20220714
  Transmission Date: 20221027
  Serious: Yes (Hospitalization, Other)
  Sender: FDA-Public Use
  Company Number: US-BRISTOL-MYERS SQUIBB COMPANY-2022-050853

PATIENT
  Age: 69 Year
  Sex: Male

DRUGS (1)
  1. REVLIMID [Suspect]
     Active Substance: LENALIDOMIDE
     Indication: Plasma cell myeloma
     Dosage: EVERY DAY FOR 21 DAYS ON  THEN 7DAYS OFF
     Route: 048

REACTIONS (4)
  - Recurrent cancer [Unknown]
  - Metastases to stomach [Unknown]
  - Intestinal metastasis [Unknown]
  - Lung neoplasm malignant [Unknown]
